FAERS Safety Report 5843038-X (Version None)
Quarter: 2008Q3

REPORT INFORMATION
  Report Type: 
  Country: None (occurrence: None)
  Receive Date: 20080813
  Receipt Date: 20080731
  Transmission Date: 20090109
  Serious: Yes (Death, Hospitalization)
  Sender: FDA-Public Use
  Company Number: US-ELI_LILLY_AND_COMPANY-US200808000104

PATIENT
  Sex: Female

DRUGS (13)
  1. ALIMTA [Suspect]
     Indication: NON-SMALL CELL LUNG CANCER
     Dosage: 500 MG/M2, UNK
     Route: 042
     Dates: start: 20070115, end: 20080428
  2. ALIMTA [Suspect]
     Dates: start: 20080501
  3. VITAMIN B-12 [Concomitant]
     Indication: VITAMIN SUPPLEMENTATION
     Dates: end: 20080101
  4. VITAMIN B-12 [Concomitant]
     Dates: start: 20080501
  5. FOLIC ACID [Concomitant]
     Indication: VITAMIN SUPPLEMENTATION
     Dates: end: 20080101
  6. FOLIC ACID [Concomitant]
     Dates: start: 20080501
  7. LOPRESSOR [Concomitant]
     Dosage: 50 MG, UNK
  8. LANTUS [Concomitant]
     Dosage: 8 U, UNK
  9. DECADRON                                /CAN/ [Concomitant]
     Dosage: 4 MG, UNK
  10. NEXIUM [Concomitant]
     Dosage: 40 MG, UNK
  11. LEVAQUIN [Concomitant]
     Dosage: 500 MG, UNK
  12. DITROPAN XL [Concomitant]
  13. AVAPRO [Concomitant]
     Dosage: 150 MG, UNK

REACTIONS (2)
  - HOSPITALISATION [None]
  - PANCYTOPENIA [None]
